FAERS Safety Report 9535486 (Version 2)
Quarter: 2013Q4

REPORT INFORMATION
  Report Type: Spontaneous
  Country: FR (occurrence: FR)
  Receive Date: 20130918
  Receipt Date: 20131003
  Transmission Date: 20140711
  Serious: Yes (Other)
  Sender: FDA-Public Use
  Company Number: FR-ABBVIE-13P-056-1148483-00

PATIENT
  Sex: Female
  Weight: 55 kg

DRUGS (2)
  1. HUMIRA [Suspect]
     Indication: SPONDYLOARTHROPATHY
     Route: 058
     Dates: start: 201301, end: 201308
  2. ZALDIAR [Concomitant]
     Indication: PRODUCT USED FOR UNKNOWN INDICATION
     Route: 048

REACTIONS (3)
  - Myokymia [Unknown]
  - Axonal neuropathy [Unknown]
  - Hyporeflexia [Unknown]
